FAERS Safety Report 18796624 (Version 3)
Quarter: 2021Q1

REPORT INFORMATION
  Report Type: Spontaneous
  Country: BR (occurrence: BR)
  Receive Date: 20210128
  Receipt Date: 20210216
  Transmission Date: 20210419
  Serious: Yes (Hospitalization)
  Sender: FDA-Public Use
  Company Number: NVSC2021BR014872

PATIENT
  Sex: Female

DRUGS (3)
  1. OXYGEN. [Suspect]
     Active Substance: OXYGEN
     Indication: PRODUCT USED FOR UNKNOWN INDICATION
     Dosage: UNK
     Route: 065
     Dates: start: 2014
  2. ALENIA [Concomitant]
     Indication: PRODUCT USED FOR UNKNOWN INDICATION
     Route: 065
  3. SEEBRI [Suspect]
     Active Substance: GLYCOPYRROLATE
     Indication: PRODUCT USED FOR UNKNOWN INDICATION
     Dosage: UNK (ALMOST 5 YEARS)
     Route: 065

REACTIONS (5)
  - Fatigue [Unknown]
  - Asthenia [Unknown]
  - Product dose omission issue [Unknown]
  - Dyspnoea [Unknown]
  - Catarrh [Unknown]
